FAERS Safety Report 25834761 (Version 3)
Quarter: 2025Q4

REPORT INFORMATION
  Report Type: Spontaneous
  Country: CA (occurrence: CA)
  Receive Date: 20250923
  Receipt Date: 20251031
  Transmission Date: 20260118
  Serious: Yes (Other)
  Sender: BAUSCH AND LOMB
  Company Number: CA-BAUSCH-BH-2025-017609

PATIENT
  Sex: Female

DRUGS (2)
  1. EFUDEX [Suspect]
     Active Substance: FLUOROURACIL
     Indication: Actinic keratosis
     Dosage: BID (MORNING AND EVENING)
     Route: 061
  2. EFUDEX [Suspect]
     Active Substance: FLUOROURACIL
     Indication: Squamous cell carcinoma

REACTIONS (7)
  - Squamous cell carcinoma [Recovered/Resolved]
  - Condition aggravated [Not Recovered/Not Resolved]
  - Actinic keratosis [Not Recovered/Not Resolved]
  - Palpitations [Not Recovered/Not Resolved]
  - Abdominal pain [Recovered/Resolved]
  - Diarrhoea [Recovered/Resolved]
  - Abdominal distension [Recovered/Resolved]
